FAERS Safety Report 23788692 (Version 1)
Quarter: 2024Q2

REPORT INFORMATION
  Report Type: Spontaneous
  Country: JP (occurrence: JP)
  Receive Date: 20240426
  Receipt Date: 20240426
  Transmission Date: 20240716
  Serious: Yes (Hospitalization)
  Sender: FDA-Public Use
  Company Number: JP-ASTELLAS-2024JP002759

PATIENT
  Age: 72 Year
  Sex: Male

DRUGS (1)
  1. PROGRAF [Suspect]
     Active Substance: TACROLIMUS
     Indication: Lung transplant
     Dosage: 2 MG, ONCE DAILY, AFTER BREAKFAST
     Route: 048

REACTIONS (2)
  - Fracture [Unknown]
  - Off label use [Unknown]
